FAERS Safety Report 7927968-0 (Version None)
Quarter: 2011Q4

REPORT INFORMATION
  Report Type: 
  Country: None (occurrence: None)
  Receive Date: 20111118
  Receipt Date: 20111109
  Transmission Date: 20120403
  Serious: Yes (Hospitalization, Other)
  Sender: FDA-Public Use
  Company Number: US-BAYER-201025560NA

PATIENT
  Age: 25 Year
  Sex: Female

DRUGS (9)
  1. YASMIN [Suspect]
     Indication: PREMENSTRUAL SYNDROME
     Dosage: UNK
     Route: 048
     Dates: start: 20070201
  2. ASCORBIC ACID [Concomitant]
  3. ZOFRAN [Concomitant]
     Dosage: UNK
     Dates: start: 20080818
  4. YAZ [Suspect]
     Indication: PREMENSTRUAL SYNDROME
     Dosage: UNK
     Route: 048
     Dates: start: 20070201
  5. AMPHETAMINE AND DEXTROAMPHETAMINE SALTS [Concomitant]
  6. PHENERGAN [Concomitant]
     Dosage: UNK
  7. ATIVAN [Concomitant]
  8. DILAUDID [Concomitant]
     Dosage: UNK
     Dates: start: 20080818
  9. ANALGESICS [Concomitant]

REACTIONS (6)
  - ABDOMINAL PAIN [None]
  - CHOLECYSTITIS CHRONIC [None]
  - HAEMATEMESIS [None]
  - NAUSEA [None]
  - GASTRITIS [None]
  - GALLBLADDER INJURY [None]
